FAERS Safety Report 7353795-1 (Version None)
Quarter: 2011Q1

REPORT INFORMATION
  Report Type: 
  Country: None (occurrence: None)
  Receive Date: 20110315
  Receipt Date: 20110308
  Transmission Date: 20110831
  Serious: Yes (Other)
  Sender: FDA-Public Use
  Company Number: US-B.I. PHARMACEUTICALS,INC./RIDGEFIELD-2011-BP-07217BP

PATIENT
  Age: 48 Year
  Sex: Male

DRUGS (5)
  1. PRADAXA [Suspect]
     Indication: ATRIAL FIBRILLATION
     Dosage: 300 MG
     Route: 048
     Dates: start: 20101221, end: 20101223
  2. PROPECIA [Concomitant]
     Indication: ALOPECIA
     Route: 048
     Dates: start: 20000101
  3. CETIRIZINE HCL [Concomitant]
     Indication: HYPERSENSITIVITY
     Dosage: 10 MG
     Route: 048
     Dates: start: 20101101
  4. VICODIN [Suspect]
     Indication: JOINT SPRAIN
     Route: 048
     Dates: start: 20101201, end: 20101223
  5. DIOVAN [Concomitant]
     Indication: HYPERTENSION
     Dosage: 80 MG
     Route: 048
     Dates: start: 20070101

REACTIONS (7)
  - HEART RATE INCREASED [None]
  - FLUSHING [None]
  - DIZZINESS [None]
  - ERYTHEMA [None]
  - OCULAR HYPERAEMIA [None]
  - HYPERSENSITIVITY [None]
  - DYSPNOEA [None]
